FAERS Safety Report 8456674-1 (Version None)
Quarter: 2012Q2

REPORT INFORMATION
  Report Type: 
  Country: None (occurrence: None)
  Receive Date: 20120621
  Receipt Date: 20120608
  Transmission Date: 20120825
  Serious: Yes (Death)
  Sender: FDA-Public Use
  Company Number: US-MYLANLABS-2011S1009958

PATIENT
  Age: 56 Year
  Sex: Female
  Weight: 62.14 kg

DRUGS (13)
  1. CITALOPRAM HYDROBROMIDE [Concomitant]
  2. CYANOCOBALAMIN [Concomitant]
     Route: 058
  3. ALPRAZOLAM [Concomitant]
  4. LEVOTHYROXINE [Concomitant]
  5. GABAPENTIN [Concomitant]
  6. LISINOPRIL [Concomitant]
  7. HYDROCODONE BITARTRATE AND ACETAMINOPHEN [Concomitant]
     Dosage: 10MG/500MG
  8. MELOXICAM [Concomitant]
  9. ZOLPIDEM [Concomitant]
  10. CARISOPRODOL [Concomitant]
  11. VENTOLIN [Concomitant]
  12. SINGULAIR [Concomitant]
  13. FENTANYL-100 [Suspect]
     Indication: BACK PAIN
     Dosage: PRESCRIBED Q72H
     Route: 062
     Dates: start: 20100318, end: 20100327

REACTIONS (2)
  - TOXICITY TO VARIOUS AGENTS [None]
  - ARTERIOSCLEROSIS CORONARY ARTERY [None]
